FAERS Safety Report 7545436-5 (Version None)
Quarter: 2011Q2

REPORT INFORMATION
  Report Type: 
  Country: None (occurrence: None)
  Receive Date: 20110614
  Receipt Date: 20110524
  Transmission Date: 20111010
  Serious: Yes (Other)
  Sender: FDA-Public Use
  Company Number: US-BAYER-2010-006249

PATIENT
  Age: 19 Year
  Sex: Female
  Weight: 72.562 kg

DRUGS (9)
  1. YASMIN [Suspect]
     Indication: MENSTRUATION IRREGULAR
     Dosage: UNK UNK, QD
     Dates: start: 20050101, end: 20090101
  2. TUMS [CALCIUM CARBONATE] [Concomitant]
     Indication: ABDOMINAL PAIN UPPER
     Dosage: UNK
     Dates: start: 20060101
  3. YAZ [Suspect]
     Indication: MENSTRUATION IRREGULAR
     Dosage: UNK
     Dates: start: 20050101, end: 20090101
  4. BENADRYL [Concomitant]
     Dosage: 25 MG, UNK
     Route: 042
     Dates: start: 20070907, end: 20070907
  5. TYLENOL-500 [Concomitant]
     Indication: HEADACHE
     Dosage: UNK
     Dates: start: 20060101
  6. SODIUM CHLORIDE [Concomitant]
     Dosage: UNK
     Route: 042
     Dates: start: 20070907, end: 20070907
  7. REGLAN [Concomitant]
     Dosage: 10 MG, UNK
     Route: 048
     Dates: start: 20070908
  8. DROSPIRENONE AND ETHINYL ESTRADIOL [Suspect]
     Indication: MENSTRUATION IRREGULAR
     Dosage: UNK
     Dates: start: 20050101, end: 20090101
  9. REGLAN [Concomitant]
     Dosage: 10 MG, UNK
     Route: 042
     Dates: start: 20070907, end: 20070907

REACTIONS (4)
  - INJURY [None]
  - PAIN [None]
  - CHOLELITHIASIS [None]
  - CHOLECYSTITIS CHRONIC [None]
